FAERS Safety Report 23788230 (Version 2)
Quarter: 2024Q2

REPORT INFORMATION
  Report Type: Spontaneous
  Country: RO (occurrence: RO)
  Receive Date: 20240426
  Receipt Date: 20240516
  Transmission Date: 20240715
  Serious: Yes (Hospitalization)
  Sender: FDA-Public Use
  Company Number: RO-ABBVIE-5712748

PATIENT
  Age: 70 Year
  Sex: Male

DRUGS (10)
  1. OBINUTUZUMAB [Suspect]
     Active Substance: OBINUTUZUMAB
     Indication: Chronic lymphocytic leukaemia
     Dosage: FROM DAY 21, DURATION: 6 COURSES
     Route: 042
     Dates: start: 2022
  2. OBINUTUZUMAB [Suspect]
     Active Substance: OBINUTUZUMAB
     Dosage: DAY8
     Route: 042
     Dates: start: 2022, end: 2022
  3. OBINUTUZUMAB [Suspect]
     Active Substance: OBINUTUZUMAB
     Dosage: DAY1
     Route: 042
     Dates: start: 2022, end: 2022
  4. OBINUTUZUMAB [Suspect]
     Active Substance: OBINUTUZUMAB
     Dosage: DAY2
     Route: 042
     Dates: start: 2022, end: 2022
  5. OBINUTUZUMAB [Suspect]
     Active Substance: OBINUTUZUMAB
     Dosage: DAY15-1000 MG
     Route: 042
     Dates: start: 2022, end: 2022
  6. VENETOCLAX [Suspect]
     Active Substance: VENETOCLAX
     Indication: Chronic lymphocytic leukaemia
     Dosage: WEEK3
     Route: 065
     Dates: start: 2022
  7. VENETOCLAX [Suspect]
     Active Substance: VENETOCLAX
     Dosage: FROM WEEK 5 AND PLUS
     Route: 065
     Dates: start: 2022, end: 202305
  8. VENETOCLAX [Suspect]
     Active Substance: VENETOCLAX
     Dosage: WEEK4
     Route: 065
     Dates: start: 2022
  9. VENETOCLAX [Suspect]
     Active Substance: VENETOCLAX
     Dosage: WEEK1, LAST ADMIN DATE- 2022
     Route: 065
     Dates: start: 202205
  10. VENETOCLAX [Suspect]
     Active Substance: VENETOCLAX
     Dosage: WEEK2
     Route: 065
     Dates: start: 2022

REACTIONS (7)
  - Neutropenia [Unknown]
  - Type 2 diabetes mellitus [Unknown]
  - Hypotension [Unknown]
  - Anaemia [Recovering/Resolving]
  - Hyperglycaemia [Recovering/Resolving]
  - Hypertension [Recovering/Resolving]
  - Thrombocytopenia [Recovering/Resolving]

NARRATIVE: CASE EVENT DATE: 20220101
